FAERS Safety Report 4694755-9 (Version None)
Quarter: 2005Q2

REPORT INFORMATION
  Report Type: 
  Country: None (occurrence: None)
  Receive Date: 20050620
  Receipt Date: 20050609
  Transmission Date: 20051028
  Serious: Yes (Other)
  Sender: FDA-Public Use
  Company Number: PHBS2005BE08343

PATIENT
  Sex: Female

DRUGS (4)
  1. GLEEVEC [Suspect]
     Indication: CHRONIC MYELOID LEUKAEMIA
     Dosage: 400 MG/D
     Route: 048
  2. GLEEVEC [Suspect]
     Dosage: 200 MG/D
     Route: 048
  3. FEMARA [Concomitant]
  4. CHEMOTHERAPEUTICS,OTHER [Concomitant]

REACTIONS (2)
  - APLASIA [None]
  - BREAST CANCER RECURRENT [None]
